FAERS Safety Report 9628544 (Version 6)
Quarter: 2015Q1

REPORT INFORMATION
  Report Type: Spontaneous
  Country: US (occurrence: US)
  Receive Date: 20131017
  Receipt Date: 20150326
  Transmission Date: 20150721
  Serious: Yes (Other)
  Sender: FDA-Public Use
  Company Number: US-009507513-1310USA004793

PATIENT
  Sex: Male
  Weight: 134.24 kg

DRUGS (2)
  1. PROPECIA [Suspect]
     Active Substance: FINASTERIDE
     Indication: ALOPECIA
     Dosage: 1 MG, UNK
     Route: 048
     Dates: start: 20071107, end: 20090410
  2. PROPECIA [Suspect]
     Active Substance: FINASTERIDE
     Dosage: 1 MG, UNK
     Route: 048
     Dates: start: 20101023, end: 20101023

REACTIONS (45)
  - Male genital atrophy [Unknown]
  - Pain in extremity [Unknown]
  - Orthopaedic procedure [Unknown]
  - Personality disorder [Not Recovered/Not Resolved]
  - Acrochordon [Unknown]
  - Electrodesiccation [Unknown]
  - Bruxism [Unknown]
  - Peripheral venous disease [Unknown]
  - Erectile dysfunction [Not Recovered/Not Resolved]
  - Anxiety [Not Recovered/Not Resolved]
  - Myoclonus [Not Recovered/Not Resolved]
  - Arthropathy [Unknown]
  - Cognitive disorder [Not Recovered/Not Resolved]
  - Insomnia [Not Recovered/Not Resolved]
  - Amnesia [Not Recovered/Not Resolved]
  - Anger [Not Recovered/Not Resolved]
  - Disturbance in attention [Not Recovered/Not Resolved]
  - Headache [Unknown]
  - Prostatitis [Unknown]
  - Nerve injury [Unknown]
  - Dizziness [Not Recovered/Not Resolved]
  - Vascular operation [Unknown]
  - Angioedema [Unknown]
  - Hypersensitivity [Unknown]
  - Pelvic pain [Unknown]
  - Nasal congestion [Unknown]
  - Testicular pain [Unknown]
  - Breast pain [Unknown]
  - Rash [Unknown]
  - Urinary tract infection [Recovered/Resolved]
  - Affective disorder [Recovering/Resolving]
  - Bone pain [Unknown]
  - Psychogenic movement disorder [Recovering/Resolving]
  - Mental disorder [Unknown]
  - Benign prostatic hyperplasia [Not Recovered/Not Resolved]
  - Impulse-control disorder [Not Recovered/Not Resolved]
  - Bipolar disorder [Not Recovered/Not Resolved]
  - Sexual dysfunction [Not Recovered/Not Resolved]
  - Cystitis [Unknown]
  - Oedema peripheral [Not Recovered/Not Resolved]
  - Dysarthria [Not Recovered/Not Resolved]
  - Knee operation [Unknown]
  - Dysuria [Recovered/Resolved]
  - Tooth extraction [Unknown]
  - Depression [Recovering/Resolving]

NARRATIVE: CASE EVENT DATE: 2007
